FAERS Safety Report 25424968 (Version 1)
Quarter: 2025Q2

REPORT INFORMATION
  Report Type: Spontaneous
  Country: CN (occurrence: CN)
  Receive Date: 20250611
  Receipt Date: 20250611
  Transmission Date: 20250716
  Serious: Yes (Hospitalization)
  Sender: NOVARTIS
  Company Number: CN-002147023-NVSC2025CN091220

PATIENT
  Age: 27 Year
  Sex: Male
  Weight: 81 kg

DRUGS (1)
  1. CARBAMAZEPINE [Suspect]
     Active Substance: CARBAMAZEPINE
     Indication: Trigeminal neuralgia
     Dosage: 0.200 G, TID
     Route: 048
     Dates: start: 20250415, end: 20250502

REACTIONS (4)
  - Rash [Recovering/Resolving]
  - Lymphadenopathy [Recovering/Resolving]
  - Drug eruption [Unknown]
  - Hyperplasia [Unknown]

NARRATIVE: CASE EVENT DATE: 20250426
